FAERS Safety Report 8396859-6 (Version None)
Quarter: 2012Q2

REPORT INFORMATION
  Report Type: 
  Country: None (occurrence: None)
  Receive Date: 20120530
  Receipt Date: 20120516
  Transmission Date: 20120825
  Serious: No
  Sender: FDA-Public Use
  Company Number: US-ASTRAZENECA-2012SE31469

PATIENT
  Age: 43 Year
  Sex: Female
  Weight: 74.8 kg

DRUGS (7)
  1. SEROQUEL [Suspect]
     Route: 048
     Dates: start: 20100101
  2. IBUPROFEN [Concomitant]
     Indication: DYSMENORRHOEA
  3. SEROQUEL [Suspect]
     Dosage: 800 MG TO 400 MG  TO 200
     Route: 048
     Dates: start: 20060101
  4. CLONAZEPAM RESTORIL [Concomitant]
  5. SEROQUEL [Suspect]
     Indication: BIPOLAR DISORDER
     Dosage: 25 MG TO 50 MG TO 200 MG TO 400 MG TO MAXIMUM 800 MG
     Route: 048
     Dates: start: 20060101
  6. VICODIN [Concomitant]
     Indication: DYSMENORRHOEA
     Dosage: 5/500 MG
  7. XANAX [Concomitant]
     Indication: ANXIETY

REACTIONS (4)
  - INTENTIONAL DRUG MISUSE [None]
  - WEIGHT INCREASED [None]
  - ADVERSE EVENT [None]
  - MENTAL DISORDER [None]
